FAERS Safety Report 8621117-1 (Version None)
Quarter: 2012Q3

REPORT INFORMATION
  Report Type: 
  Country: None (occurrence: None)
  Receive Date: 20120824
  Receipt Date: 20120822
  Transmission Date: 20120928
  Serious: Yes (Hospitalization)
  Sender: FDA-Public Use
  Company Number: DE-ROCHE-1102495

PATIENT
  Sex: Female
  Weight: 77 kg

DRUGS (3)
  1. XELODA [Suspect]
     Indication: BREAST CANCER
  2. VINORELBINE TARTRATE [Suspect]
     Indication: BREAST CANCER
  3. AVASTIN [Suspect]
     Indication: BREAST CANCER

REACTIONS (2)
  - BRADYARRHYTHMIA [None]
  - DEHYDRATION [None]
